FAERS Safety Report 10204647 (Version 1)
Quarter: 2014Q2

REPORT INFORMATION
  Report Type: Spontaneous
  Country: CA (occurrence: None)
  Receive Date: 20140527
  Receipt Date: 20140527
  Transmission Date: 20141212
  Serious: Yes (Other)
  Sender: FDA-Public Use
  Company Number: CA-015564

PATIENT
  Sex: 0

DRUGS (1)
  1. CERVIDIL [Suspect]
     Indication: INDUCTION OF CERVIX RIPENING
     Route: 064
     Dates: start: 20140422, end: 20140422

REACTIONS (3)
  - Maternal drugs affecting foetus [None]
  - Foetal distress syndrome [None]
  - Foetal heart rate deceleration abnormality [None]
